FAERS Safety Report 9859012 (Version 1)
Quarter: 2014Q1

REPORT INFORMATION
  Report Type: Spontaneous
  Country: US (occurrence: US)
  Receive Date: 20140131
  Receipt Date: 20140131
  Transmission Date: 20141002
  Serious: Yes (Hospitalization, Other)
  Sender: FDA-Public Use
  Company Number: US-PFIZER INC-2014028132

PATIENT
  Age: 60 Year
  Sex: Female
  Weight: 226 kg

DRUGS (1)
  1. CHANTIX [Suspect]
     Indication: SMOKING CESSATION THERAPY
     Dosage: UNK

REACTIONS (4)
  - Pneumothorax [Unknown]
  - Cardiac arrest [Unknown]
  - Coma [Unknown]
  - Bronchitis [Unknown]
